FAERS Safety Report 23908125 (Version 2)
Quarter: 2024Q3

REPORT INFORMATION
  Report Type: Spontaneous
  Country: AU (occurrence: AU)
  Receive Date: 20240528
  Receipt Date: 20240705
  Transmission Date: 20241016
  Serious: Yes (Other)
  Sender: Harrow Health
  Company Number: AU-Santen Oy-2024-AUS-003709

PATIENT
  Age: 53 Year
  Sex: Male

DRUGS (4)
  1. CYCLOSPORINE [Suspect]
     Active Substance: CYCLOSPORINE
     Indication: Uveitis
     Dosage: ONCE A DAY BUT PROBABLY FIVE DROPS INSTEAD OF THE ONE
     Route: 047
     Dates: start: 20231218
  2. CYCLOSPORINE [Suspect]
     Active Substance: CYCLOSPORINE
     Indication: Uveitis
     Dosage: ONCE A DAY BUT PROBABLY FIVE DROPS INSTEAD OF THE ONE
     Route: 047
     Dates: start: 20231220, end: 20240511
  3. DEXAMETHASONE [Suspect]
     Active Substance: DEXAMETHASONE
     Indication: Uveitis
     Dosage: TWICE DAILY
     Route: 047
     Dates: start: 202312, end: 202404
  4. ILEVRO [Suspect]
     Active Substance: NEPAFENAC
     Indication: Product used for unknown indication
     Route: 065

REACTIONS (4)
  - Corneal oedema [Not Recovered/Not Resolved]
  - Corneal endotheliitis [Not Recovered/Not Resolved]
  - Overdose [Not Recovered/Not Resolved]
  - Off label use [Unknown]

NARRATIVE: CASE EVENT DATE: 20231220
